FAERS Safety Report 6451150-X (Version None)
Quarter: 2009Q4

REPORT INFORMATION
  Report Type: 
  Country: None (occurrence: None)
  Receive Date: 20091123
  Receipt Date: 20090401
  Transmission Date: 20100525
  Serious: Yes (Other)
  Sender: FDA-Public Use
  Company Number: US-AMGEN-QUU331172

PATIENT
  Sex: Female

DRUGS (5)
  1. ENBREL [Suspect]
     Indication: PSORIASIS
     Route: 058
     Dates: start: 20041129, end: 20090101
  2. LEXAPRO [Concomitant]
  3. PREMPRO [Concomitant]
  4. ALLEGRA [Concomitant]
  5. ALLERGY MEDICATION [Concomitant]

REACTIONS (1)
  - LUNG CANCER METASTATIC [None]
